FAERS Safety Report 11289661 (Version 2)
Quarter: 2015Q3

REPORT INFORMATION
  Report Type: Report from Study
  Country: IN (occurrence: IN)
  Receive Date: 20150721
  Receipt Date: 20150727
  Transmission Date: 20151125
  Serious: Yes (Other)
  Sender: FDA-Public Use
  Company Number: PHHO2015IN011944

PATIENT
  Age: 56 Year
  Sex: Male
  Weight: 58 kg

DRUGS (4)
  1. LDK378 [Suspect]
     Active Substance: CERITINIB
     Indication: NON-SMALL CELL LUNG CANCER
     Dosage: 750 MG, QD
     Route: 048
     Dates: start: 20150327
  2. ELDOPER [Concomitant]
     Indication: DIARRHOEA
     Dosage: TID
     Route: 048
     Dates: start: 20150624
  3. FEFOL Z [Concomitant]
     Indication: ANAEMIA
     Dosage: OD
     Route: 048
     Dates: start: 20150624
  4. EPREX [Concomitant]
     Active Substance: ERYTHROPOIETIN
     Indication: ANAEMIA
     Dosage: 40000 U, QW
     Route: 058
     Dates: start: 20150513

REACTIONS (1)
  - Anaemia [Recovered/Resolved]

NARRATIVE: CASE EVENT DATE: 20150715
